FAERS Safety Report 9493778 (Version 1)
Quarter: 2013Q3

REPORT INFORMATION
  Report Type: Report from Study
  Country: JP (occurrence: JP)
  Receive Date: 20130902
  Receipt Date: 20130902
  Transmission Date: 20140515
  Serious: Yes (Other)
  Sender: FDA-Public Use
  Company Number: JP-JNJFOC-20130817072

PATIENT
  Age: 78 Year
  Sex: Female
  Weight: 62 kg

DRUGS (12)
  1. XARELTO [Suspect]
     Indication: THROMBOSIS PROPHYLAXIS
     Route: 048
     Dates: start: 20130226
  2. XARELTO [Suspect]
     Indication: THROMBOSIS PROPHYLAXIS
     Route: 048
     Dates: start: 20120807, end: 20130225
  3. XARELTO [Suspect]
     Indication: CEREBROVASCULAR ACCIDENT PROPHYLAXIS
     Route: 048
     Dates: start: 20130226
  4. XARELTO [Suspect]
     Indication: CEREBROVASCULAR ACCIDENT PROPHYLAXIS
     Route: 048
     Dates: start: 20120807, end: 20130225
  5. MAGNESIUM OXIDE [Concomitant]
     Route: 048
     Dates: start: 20130521
  6. LASIX [Concomitant]
     Route: 048
     Dates: start: 20120703
  7. LIPITOR [Concomitant]
     Route: 048
  8. VASOLAN [Concomitant]
     Route: 048
  9. PURSENNID [Concomitant]
     Route: 048
  10. LANIRAPID [Concomitant]
     Route: 048
     Dates: start: 20120703
  11. EVISTA [Concomitant]
     Route: 048
     Dates: start: 20120117
  12. ALDACTONE A [Concomitant]
     Route: 048
     Dates: start: 20120117

REACTIONS (1)
  - Renal impairment [Not Recovered/Not Resolved]
